FAERS Safety Report 16405260 (Version 1)
Quarter: 2019Q2

REPORT INFORMATION
  Report Type: Spontaneous
  Country: US (occurrence: US)
  Receive Date: 20190607
  Receipt Date: 20190607
  Transmission Date: 20190711
  Serious: Yes (Hospitalization)
  Sender: FDA-Public Use
  Company Number: US-ACTELION-A-NJ2019-191342

PATIENT
  Age: 66 Year
  Sex: Female

DRUGS (1)
  1. OPSUMIT [Suspect]
     Active Substance: MACITENTAN
     Indication: PULMONARY ARTERIAL HYPERTENSION
     Dosage: 10 MG, QD
     Route: 048

REACTIONS (9)
  - Vomiting [Recovering/Resolving]
  - Diarrhoea [Recovering/Resolving]
  - Eye swelling [Unknown]
  - Dehydration [Recovering/Resolving]
  - Eye operation [Unknown]
  - Photophobia [Unknown]
  - Ocular hyperaemia [Unknown]
  - Product dose omission [Recovering/Resolving]
  - Gastroenteritis viral [Recovering/Resolving]

NARRATIVE: CASE EVENT DATE: 20190418
